FAERS Safety Report 13465481 (Version 4)
Quarter: 2017Q2

REPORT INFORMATION
  Report Type: Spontaneous
  Country: SI (occurrence: SI)
  Receive Date: 20170421
  Receipt Date: 20170522
  Transmission Date: 20170830
  Serious: Yes (Other)
  Sender: FDA-Public Use
  Company Number: SI-JNJFOC-20170420258

PATIENT
  Sex: Female
  Weight: 140 kg

DRUGS (1)
  1. XARELTO [Suspect]
     Active Substance: RIVAROXABAN
     Indication: PULMONARY EMBOLISM
     Route: 048
     Dates: start: 201611

REACTIONS (14)
  - Cough [Not Recovered/Not Resolved]
  - Erythema [Unknown]
  - Goitre [Unknown]
  - Pulmonary infarction [Unknown]
  - Oedema peripheral [Unknown]
  - Choking [Unknown]
  - Pulmonary hypertension [Unknown]
  - Genital haemorrhage [Unknown]
  - Pulmonary embolism [Unknown]
  - Dyspnoea exertional [Unknown]
  - Pleural effusion [Unknown]
  - Dyspnoea at rest [Unknown]
  - Dyspnoea [Unknown]
  - Peripheral swelling [Unknown]

NARRATIVE: CASE EVENT DATE: 201611
